FAERS Safety Report 21610260 (Version 1)
Quarter: 2022Q4

REPORT INFORMATION
  Report Type: Spontaneous
  Country: ES (occurrence: ES)
  Receive Date: 20221117
  Receipt Date: 20221117
  Transmission Date: 20230112
  Serious: Yes (Hospitalization)
  Sender: FDA-Public Use
  Company Number: None

PATIENT
  Age: 76 Year
  Sex: Female

DRUGS (17)
  1. METFORMIN HYDROCHLORIDE [Suspect]
     Active Substance: METFORMIN HYDROCHLORIDE
     Indication: Diabetes mellitus
     Dosage: 850.0 MG C/12 H
     Route: 048
     Dates: start: 20220201, end: 20220212
  2. CALCIUM CARBONATE\CHOLECALCIFEROL [Concomitant]
     Active Substance: CALCIUM CARBONATE\CHOLECALCIFEROL
     Indication: Rheumatoid arthritis
     Dosage: 1.0 COMP D-CE, 500 MG/400 IU CHEWABLE TABLETS, 60 TABLETS
     Route: 048
     Dates: start: 20110426
  3. AMLODIPINE BESYLATE [Concomitant]
     Active Substance: AMLODIPINE BESYLATE
     Indication: Hypertension
     Dosage: 10.0 MG CE, CINFA 10 MG TABLETS EFG, 30 TABLET
     Route: 048
     Dates: start: 20200131
  4. ACIDO FOLICO ASPOL [Concomitant]
     Indication: Rheumatoid arthritis
     Dosage: 10.0 MG C/7 DIAS, 50 CAPSULES
     Route: 048
     Dates: start: 20190606
  5. METHOTREXATE SODIUM [Concomitant]
     Active Substance: METHOTREXATE SODIUM
     Indication: Rheumatoid arthritis
     Dosage: 15 MG/ 0.30 ML, 1 PRE-FILLED SYRINGE OF 0.3 ML, 15.0 MG C/7 DIAS
     Route: 058
     Dates: start: 20191019
  6. SIMVASTATIN [Concomitant]
     Active Substance: SIMVASTATIN
     Indication: Hyperlipidaemia
     Dosage: 40.0 MG CE, 28 TABLETS
     Route: 048
     Dates: start: 20190215
  7. BISOPROLOL [Concomitant]
     Active Substance: BISOPROLOL
     Indication: Hypertension
     Dosage: 2.5 MG DECE, 28 TABLETS
     Route: 048
     Dates: start: 20180427
  8. INSULIN GLARGINE [Concomitant]
     Active Substance: INSULIN GLARGINE
     Indication: Type 2 diabetes mellitus
     Dosage: 14.0 UI C/24 H, 100 UNITS/ML KWIKPEN SOLUTION FOR INJECTION IN PRE-FILLED PEN 5 PENS 3ML PREFILLED
     Route: 058
     Dates: start: 20190528
  9. PANTOPRAZOL STADA [Concomitant]
     Indication: Abdominal pain
     Dosage: 40.0 MG DE, 56 TABLETS
     Route: 048
     Dates: start: 20200804
  10. LEVOTHYROXINE SODIUM [Concomitant]
     Active Substance: LEVOTHYROXINE SODIUM
     Indication: Hypothyroidism
     Dosage: 150.0 MCG A-DE, 100 TABLETS
     Route: 048
     Dates: start: 20220202
  11. NOVORAPID [Concomitant]
     Active Substance: INSULIN ASPART
     Indication: Type 2 diabetes mellitus
     Dosage: 3.0 UI A-DECOCE, 100 U/ML, 5 PRE-FILLED PENS OF 3 ML
     Route: 058
     Dates: start: 20200319
  12. NOCTAMID [LORMETAZEPAM] [Concomitant]
     Indication: Insomnia
     Dosage: 2.0 MG C/24 H NOC, 1 BOTTLE OF 20 ML
     Route: 048
     Dates: start: 20180201
  13. PARACETAMOL CINFA [Concomitant]
     Indication: Rheumatoid arthritis
     Dosage: 1.0 G DECOCE, 40 TABLETS
     Route: 048
     Dates: start: 20131210
  14. CARBIDOPA\LEVODOPA [Concomitant]
     Active Substance: CARBIDOPA\LEVODOPA
     Indication: Dyskinesia
     Dosage: 1.0 COMP C/8 HORAS, 25 MG/100 MG, 100 TABLETS
     Route: 048
     Dates: start: 20170125
  15. LOSARTAN/HIDROCLOROTIAZIDA CINFA [Concomitant]
     Indication: Hypertension
     Dosage: 1.0 COMP DE, 100 MG/25 MG, 28 TABLETS
     Route: 048
     Dates: start: 20190928
  16. MIRTAZAPINE [Concomitant]
     Active Substance: MIRTAZAPINE
     Indication: Anxiety
     Dosage: 30.0 MG C/24 H NOC, 30 TABLETS
     Route: 048
     Dates: start: 20200131
  17. ASPIRIN [Concomitant]
     Active Substance: ASPIRIN
     Indication: Abdominal pain
     Dosage: 100.0 MG DE, 30 TABLETS
     Route: 048
     Dates: start: 20220520

REACTIONS (3)
  - Vomiting [Recovered/Resolved]
  - Diarrhoea [Recovered/Resolved]
  - Abdominal pain [Recovered/Resolved]

NARRATIVE: CASE EVENT DATE: 20220212
